FAERS Safety Report 7897430-2 (Version None)
Quarter: 2011Q4

REPORT INFORMATION
  Report Type: 
  Country: None (occurrence: None)
  Receive Date: 20111107
  Receipt Date: 20111102
  Transmission Date: 20120403
  Serious: Yes (Other)
  Sender: FDA-Public Use
  Company Number: NL-AMGEN-NLDSP2011057179

PATIENT
  Age: 60 Year
  Sex: Female

DRUGS (1)
  1. NPLATE [Suspect]
     Indication: PRODUCT USED FOR UNKNOWN INDICATION
     Dosage: 6 MUG/KG, UNK
     Dates: start: 20110401

REACTIONS (4)
  - ERYTHROBLAST COUNT ABNORMAL [None]
  - HEADACHE [None]
  - PLATELET COUNT DECREASED [None]
  - BONE PAIN [None]
